FAERS Safety Report 22201618 (Version 1)
Quarter: 2023Q2

REPORT INFORMATION
  Report Type: Spontaneous
  Country: US (occurrence: US)
  Receive Date: 20230412
  Receipt Date: 20230412
  Transmission Date: 20230721
  Serious: Yes (Death, Other)
  Sender: FDA-Public Use
  Company Number: US-AMGEN-USASP2023058787

PATIENT
  Age: 73 Year
  Sex: Male

DRUGS (1)
  1. FILGRASTIM [Suspect]
     Active Substance: FILGRASTIM
     Indication: Neutropenia
     Dosage: UNK
     Route: 065

REACTIONS (3)
  - Death [Fatal]
  - Haemophagocytic lymphohistiocytosis [Unknown]
  - Drug ineffective [Unknown]
